FAERS Safety Report 15095904 (Version 1)
Quarter: 2018Q3

REPORT INFORMATION
  Report Type: Spontaneous
  Country: US (occurrence: US)
  Receive Date: 20180702
  Receipt Date: 20180702
  Transmission Date: 20181010
  Serious: No
  Sender: FDA-Public Use
  Company Number: US-GLENMARK PHARMACEUTICALS-2017GMK029107

PATIENT

DRUGS (5)
  1. LEUPROLIDE ACETATE. [Suspect]
     Active Substance: LEUPROLIDE ACETATE
     Indication: ENDOMETRIOSIS
     Dosage: 3.75 MG ONCE IN A MONTH
     Route: 065
     Dates: start: 20141215, end: 20150315
  2. NORETHINDRONE ACETATE. [Suspect]
     Active Substance: NORETHINDRONE ACETATE
     Indication: ENDOMETRIOSIS
     Dosage: 5 MG, QD
     Route: 065
     Dates: start: 20141215
  3. NORETHINDRONE ACETATE. [Suspect]
     Active Substance: NORETHINDRONE ACETATE
     Dosage: 2.5 MG, UNK
     Route: 065
  4. LEUPROLIDE ACETATE. [Suspect]
     Active Substance: LEUPROLIDE ACETATE
     Dosage: 3.75 MG ONCE IN A MONTH
     Route: 065
     Dates: end: 20150315
  5. LUPRON [Suspect]
     Active Substance: LEUPROLIDE ACETATE
     Indication: ENDOMETRIOSIS
     Dosage: 3.75 MG ONCE IN A MONTH
     Route: 065
     Dates: start: 20171002

REACTIONS (6)
  - Menstruation irregular [Recovered/Resolved]
  - Live birth [Unknown]
  - Hot flush [Recovered/Resolved]
  - Pregnancy [Unknown]
  - Pelvic pain [Not Recovered/Not Resolved]
  - Exposure during pregnancy [Unknown]

NARRATIVE: CASE EVENT DATE: 20141215
